FAERS Safety Report 12890297 (Version 1)
Quarter: 2016Q4

REPORT INFORMATION
  Report Type: Spontaneous
  Country: US (occurrence: US)
  Receive Date: 20161027
  Receipt Date: 20161027
  Transmission Date: 20170207
  Serious: Yes (Other)
  Sender: FDA-Public Use
  Company Number: US-TEVA-706961USA

PATIENT
  Sex: Female

DRUGS (14)
  1. DILTIAZEM. [Concomitant]
     Active Substance: DILTIAZEM
  2. OXYBUYNIN [Concomitant]
  3. LANTUS [Concomitant]
     Active Substance: INSULIN GLARGINE
  4. FAMOTIDINE. [Concomitant]
     Active Substance: FAMOTIDINE
  5. VITAMIN D [Concomitant]
     Active Substance: CHOLECALCIFEROL
  6. TAMSULOSIN [Concomitant]
     Active Substance: TAMSULOSIN
  7. NOVOLOG [Concomitant]
     Active Substance: INSULIN ASPART
  8. METFORMIN [Concomitant]
     Active Substance: METFORMIN HYDROCHLORIDE
  9. BENAZEPRIL [Concomitant]
     Active Substance: BENAZEPRIL HYDROCHLORIDE
  10. BACLOFEN. [Concomitant]
     Active Substance: BACLOFEN
  11. COPAXONE [Suspect]
     Active Substance: GLATIRAMER ACETATE
     Indication: MULTIPLE SCLEROSIS
     Route: 058
  12. OMEPRAZOLE PRAMIPEXOLE [Concomitant]
  13. AMPYRA [Concomitant]
     Active Substance: DALFAMPRIDINE
  14. HYDROCO/APAP [Concomitant]
     Active Substance: ACETAMINOPHEN\HYDROCODONE

REACTIONS (2)
  - Multiple sclerosis relapse [Unknown]
  - Fatigue [Unknown]
